FAERS Safety Report 10565713 (Version 1)
Quarter: 2014Q4

REPORT INFORMATION
  Report Type: Spontaneous
  Country: US (occurrence: None)
  Receive Date: 20141103
  Receipt Date: 20141103
  Transmission Date: 20150529
  Serious: Yes (Other)
  Sender: FDA-Public Use
  Company Number: 2014SUP00069

PATIENT
  Age: 76 Year
  Sex: Female
  Weight: 56.7 kg

DRUGS (6)
  1. COENZYME Q10 [Concomitant]
     Active Substance: UBIDECARENONE
  2. GRALISE [Concomitant]
     Active Substance: GABAPENTIN
  3. ATENOLOL. [Concomitant]
     Active Substance: ATENOLOL
  4. TROKENDI XR [Suspect]
     Active Substance: TOPIRAMATE
     Indication: POST HERPETIC NEURALGIA
     Route: 048
     Dates: start: 20141008, end: 201410
  5. MAGNESIUM [Concomitant]
     Active Substance: MAGNESIUM
  6. LIPITOR [Concomitant]
     Active Substance: ATORVASTATIN CALCIUM

REACTIONS (8)
  - Dizziness [None]
  - Decreased appetite [None]
  - Off label use [None]
  - Pain in extremity [None]
  - Tinnitus [None]
  - Activities of daily living impaired [None]
  - Expired product administered [None]
  - Musculoskeletal pain [None]

NARRATIVE: CASE EVENT DATE: 20141008
